FAERS Safety Report 4711830-0 (Version None)
Quarter: 2005Q2

REPORT INFORMATION
  Report Type: 
  Country: None (occurrence: None)
  Receive Date: 20050629
  Receipt Date: 20050524
  Transmission Date: 20051028
  Serious: No
  Sender: FDA-Public Use
  Company Number: 05P-163-0301264-00

PATIENT
  Age: 47 Year
  Sex: Female
  Weight: 56.6996 kg

DRUGS (6)
  1. HUMIRA [Suspect]
     Indication: RHEUMATOID ARTHRITIS
     Dosage: 40 MG, 1 IN 2 WK, SUBCUTANEOUS
     Route: 058
     Dates: start: 20050406
  2. ESTRADIOL [Concomitant]
  3. THYROID TAB [Concomitant]
  4. ZOLPIDEM TARTRATE [Concomitant]
  5. PROPACET 100 [Concomitant]
  6. CYNBALTA [Concomitant]

REACTIONS (2)
  - DIZZINESS [None]
  - PAIN [None]
